FAERS Safety Report 14478289 (Version 1)
Quarter: 2018Q1

REPORT INFORMATION
  Report Type: Spontaneous
  Country: AT (occurrence: AT)
  Receive Date: 20180202
  Receipt Date: 20180202
  Transmission Date: 20180509
  Serious: Yes (Hospitalization, Other)
  Sender: FDA-Public Use
  Company Number: AT-TEVA-818970ISR

PATIENT
  Age: 67 Year
  Sex: Female

DRUGS (35)
  1. SERTRALINE [Suspect]
     Active Substance: SERTRALINE HYDROCHLORIDE
     Route: 065
     Dates: start: 20170614, end: 20170619
  2. AKINETON [Suspect]
     Active Substance: BIPERIDEN HYDROCHLORIDE
     Route: 065
     Dates: start: 20170703, end: 20170707
  3. PRAXITEN [Concomitant]
     Active Substance: OXAZEPAM
     Route: 065
     Dates: start: 20170617, end: 20170617
  4. RISPERDAL [Concomitant]
     Active Substance: RISPERIDONE
     Route: 065
     Dates: start: 20170630, end: 20170630
  5. RISPERDAL [Concomitant]
     Active Substance: RISPERIDONE
     Route: 065
     Dates: start: 20170706, end: 20170706
  6. TEMESTA (LORAZEPAM) [Concomitant]
     Active Substance: LORAZEPAM
     Route: 065
     Dates: start: 20170707, end: 20170719
  7. ABILIFY [Concomitant]
     Active Substance: ARIPIPRAZOLE
     Route: 065
     Dates: start: 20170727
  8. SEROQUEL [Suspect]
     Active Substance: QUETIAPINE FUMARATE
     Route: 065
     Dates: start: 20170620, end: 20170620
  9. LEPONEX [Suspect]
     Active Substance: CLOZAPINE
     Route: 065
     Dates: start: 20170614, end: 20170619
  10. LEPONEX [Suspect]
     Active Substance: CLOZAPINE
     Route: 065
     Dates: start: 20170620, end: 20170620
  11. PRAXITEN [Concomitant]
     Active Substance: OXAZEPAM
     Route: 065
     Dates: start: 20170621, end: 20170626
  12. PRAXITEN [Concomitant]
     Active Substance: OXAZEPAM
     Route: 065
     Dates: start: 20170705, end: 20170706
  13. SELEXID (PEVMECILLINAM HYDROCHLORIDE) [Concomitant]
     Active Substance: AMDINOCILLIN PIVOXIL HYDROCHLORIDE
     Route: 065
     Dates: start: 20170627, end: 20170630
  14. AMANTADINE SULFATE [Concomitant]
     Active Substance: AMANTADINE SULFATE
     Route: 065
     Dates: start: 20170708, end: 20170719
  15. SEROQUEL [Suspect]
     Active Substance: QUETIAPINE FUMARATE
     Route: 065
     Dates: start: 20170617, end: 20170618
  16. PRAXITEN [Concomitant]
     Active Substance: OXAZEPAM
     Route: 065
     Dates: start: 20170618, end: 20170618
  17. GLUCOPHAGE [Concomitant]
     Active Substance: METFORMIN HYDROCHLORIDE
     Route: 065
     Dates: start: 20170614, end: 20170703
  18. RISPERDAL [Concomitant]
     Active Substance: RISPERIDONE
     Route: 065
     Dates: start: 20170626, end: 20170629
  19. LAEVOLAC [Concomitant]
     Active Substance: LACTULOSE
     Dosage: 2 SPOONS
     Route: 065
     Dates: start: 20170723
  20. PRAXITEN [Concomitant]
     Active Substance: OXAZEPAM
     Route: 065
     Dates: start: 20170701, end: 20170704
  21. RISPERDAL [Concomitant]
     Active Substance: RISPERIDONE
     Route: 065
     Dates: start: 20170701, end: 20170702
  22. RISPERDAL [Concomitant]
     Active Substance: RISPERIDONE
     Route: 065
     Dates: start: 20170705, end: 20170705
  23. LOVENOX [Concomitant]
     Active Substance: ENOXAPARIN SODIUM
     Route: 065
     Dates: start: 20170621, end: 20170729
  24. MOLAXOLE [Concomitant]
     Active Substance: POLYETHYLENE GLYCOL 3350\POTASSIUM CHLORIDE\SODIUM BICARBONATE\SODIUM CHLORIDE
     Route: 065
     Dates: start: 20170614, end: 20170707
  25. ABILIFY [Concomitant]
     Active Substance: ARIPIPRAZOLE
     Route: 065
     Dates: start: 20170725, end: 20170726
  26. SEROQUEL [Suspect]
     Active Substance: QUETIAPINE FUMARATE
     Route: 065
     Dates: start: 20170619, end: 20170619
  27. PRAXITEN [Concomitant]
     Active Substance: OXAZEPAM
     Route: 065
     Dates: start: 20170614, end: 20170616
  28. PRAXITEN [Concomitant]
     Active Substance: OXAZEPAM
     Route: 065
     Dates: start: 20170626, end: 20170630
  29. RISPERDAL [Concomitant]
     Active Substance: RISPERIDONE
     Route: 065
     Dates: start: 20170703, end: 20170704
  30. TEMESTA (LORAZEPAM) [Concomitant]
     Active Substance: LORAZEPAM
     Route: 065
     Dates: start: 20170720
  31. PANTOLOLC [Concomitant]
     Route: 065
     Dates: start: 20170614, end: 20170707
  32. NACL [Concomitant]
     Active Substance: SODIUM CHLORIDE
     Route: 065
     Dates: start: 20170614, end: 20170620
  33. SEROQUEL [Suspect]
     Active Substance: QUETIAPINE FUMARATE
     Route: 065
     Dates: start: 20170614, end: 20170616
  34. AKINETON [Suspect]
     Active Substance: BIPERIDEN HYDROCHLORIDE
     Route: 065
     Dates: start: 20170614, end: 20170622
  35. PRAXITEN [Concomitant]
     Active Substance: OXAZEPAM
     Route: 065
     Dates: start: 20170619, end: 20170620

REACTIONS (4)
  - Underdose [Unknown]
  - Delirium [Recovered/Resolved]
  - Wrong technique in product usage process [Unknown]
  - Extrapyramidal disorder [Recovered/Resolved]

NARRATIVE: CASE EVENT DATE: 20170619
